FAERS Safety Report 5596122-2 (Version None)
Quarter: 2008Q1

REPORT INFORMATION
  Report Type: 
  Country: None (occurrence: None)
  Receive Date: 20080118
  Receipt Date: 20080102
  Transmission Date: 20080703
  Serious: No
  Sender: FDA-Public Use
  Company Number: US-BOEHRINGER INGELHEIM PHARMACEUTICALS, INC.-2008-BP-00142BP

PATIENT
  Age: 83 Year
  Sex: Female

DRUGS (9)
  1. SPIRIVA [Suspect]
     Indication: CHRONIC OBSTRUCTIVE PULMONARY DISEASE
     Route: 055
     Dates: start: 20050101
  2. COUMADIN [Concomitant]
  3. DIGOXIN [Concomitant]
  4. KLOR-CON [Concomitant]
  5. LASIX [Concomitant]
  6. METOPROLOL TARTRATE [Concomitant]
  7. AVAPRO [Concomitant]
  8. NIFEDIPINE [Concomitant]
  9. OMEPRAZOLE [Concomitant]

REACTIONS (2)
  - AGEUSIA [None]
  - DRUG INEFFECTIVE [None]
